FAERS Safety Report 7044509-3 (Version None)
Quarter: 2010Q4

REPORT INFORMATION
  Report Type: 
  Country: None (occurrence: None)
  Receive Date: 20101014
  Receipt Date: 20101012
  Transmission Date: 20110411
  Serious: No
  Sender: FDA-Public Use
  Company Number: US-B.I. PHARMACEUTICALS,INC./RIDGEFIELD-2010-BP-11468BP

PATIENT
  Sex: Male

DRUGS (2)
  1. ZANTAC 150 [Suspect]
     Indication: DYSPEPSIA
     Dosage: 300 MG
     Route: 048
     Dates: start: 20101011
  2. UNSPECIFIED STEROIDS [Concomitant]
     Indication: RASH
     Route: 048
     Dates: start: 20100901

REACTIONS (2)
  - DYSPEPSIA [None]
  - MIGRAINE [None]
